FAERS Safety Report 5095694-4 (Version None)
Quarter: 2006Q3

REPORT INFORMATION
  Report Type: 
  Country: None (occurrence: None)
  Receive Date: 20060731
  Receipt Date: 20060427
  Transmission Date: 20061208
  Serious: No
  Sender: FDA-Public Use
  Company Number: 2006PV012822

PATIENT
  Age: 74 Year
  Sex: Male
  Weight: 120.2032 kg

DRUGS (10)
  1. BYETTA [Suspect]
     Indication: DIABETES MELLITUS NON-INSULIN-DEPENDENT
     Dosage: 10 MCG; BID; SC, SEE IMAGE
     Route: 058
     Dates: start: 20050101, end: 20050101
  2. BYETTA [Suspect]
     Indication: DIABETES MELLITUS NON-INSULIN-DEPENDENT
     Dosage: 10 MCG; BID; SC, SEE IMAGE
     Route: 058
     Dates: start: 20050101
  3. MINOXIDIL [Suspect]
     Indication: DRUG USE FOR UNKNOWN INDICATION
     Dosage: 5 MG; QD; PO, SEE IMAGE
     Route: 048
     Dates: start: 20060420, end: 20060101
  4. MINOXIDIL [Suspect]
     Indication: DRUG USE FOR UNKNOWN INDICATION
     Dosage: 5 MG; QD; PO, SEE IMAGE
     Route: 048
     Dates: start: 20060101
  5. METFORMIN HCL [Concomitant]
  6. GLYBURIDE [Concomitant]
  7. HYZAAR [Concomitant]
  8. NAPROXSYN [Concomitant]
  9. ACIPHEX [Concomitant]
  10. QUINAPRIL [Concomitant]

REACTIONS (4)
  - BLOOD PRESSURE DECREASED [None]
  - DYSGEUSIA [None]
  - NAUSEA [None]
  - VOMITING [None]
